FAERS Safety Report 26047995 (Version 1)
Quarter: 2025Q4

REPORT INFORMATION
  Report Type: Report from Study
  Country: US (occurrence: US)
  Receive Date: 20251114
  Receipt Date: 20251114
  Transmission Date: 20260118
  Serious: Yes (Hospitalization, Other)
  Sender: MALLINCKRODT
  Company Number: US-MALLINCKRODT-MNK202506999

PATIENT
  Sex: Female

DRUGS (1)
  1. CORTICOTROPIN [Suspect]
     Active Substance: CORTICOTROPIN
     Indication: Ankylosing spondylitis
     Dosage: UNKNOWN

REACTIONS (5)
  - Hypovolaemic shock [Unknown]
  - Pericardial effusion [Unknown]
  - Pleural effusion [Unknown]
  - Pneumonia [Unknown]
  - Cardiac failure congestive [Unknown]
